FAERS Safety Report 5583240-8 (Version None)
Quarter: 2008Q1

REPORT INFORMATION
  Report Type: 
  Country: None (occurrence: None)
  Receive Date: 20080107
  Receipt Date: 20080103
  Transmission Date: 20080703
  Serious: Yes (Hospitalization)
  Sender: FDA-Public Use
  Company Number: US-ASTRAZENECA-2006UW11577

PATIENT
  Age: 65 Year
  Sex: Male
  Weight: 39.9 kg

DRUGS (6)
  1. IRESSA [Suspect]
     Indication: METASTATIC RENAL CELL CARCINOMA
     Route: 048
     Dates: start: 20050624, end: 20051108
  2. SUTENT [Suspect]
     Indication: METASTATIC RENAL CELL CARCINOMA
     Route: 048
     Dates: start: 20050615, end: 20050712
  3. SUTENT [Suspect]
     Route: 048
     Dates: start: 20050727, end: 20051115
  4. SUTENT [Suspect]
     Route: 048
     Dates: start: 20051129, end: 20051227
  5. PRILOSEC [Concomitant]
     Route: 048
     Dates: start: 20050726
  6. SYNTHROID [Concomitant]
     Indication: HYPOTHYROIDISM
     Route: 048
     Dates: start: 20050823

REACTIONS (1)
  - SINUS TACHYCARDIA [None]
